FAERS Safety Report 20306801 (Version 1)
Quarter: 2022Q1

REPORT INFORMATION
  Report Type: Spontaneous
  Country: US (occurrence: None)
  Receive Date: 20220103
  Receipt Date: 20220103
  Transmission Date: 20220423
  Serious: No
  Sender: FDA-Public Use
  Company Number: None

PATIENT
  Age: 41 Year
  Sex: Female
  Weight: 79.2 kg

DRUGS (2)
  1. PAXLOVID [Suspect]
     Active Substance: NIRMATRELVIR\RITONAVIR
     Indication: COVID-19
     Dates: start: 20211229, end: 20220103
  2. arunity [Concomitant]

REACTIONS (3)
  - Dysgeusia [None]
  - Noninfective gingivitis [None]
  - Gingival bleeding [None]

NARRATIVE: CASE EVENT DATE: 20220103
